FAERS Safety Report 5992160-6 (Version None)
Quarter: 2008Q4

REPORT INFORMATION
  Report Type: 
  Country: None (occurrence: None)
  Receive Date: 20081202
  Receipt Date: 20080415
  Transmission Date: 20090506
  Serious: Yes (Other)
  Sender: FDA-Public Use
  Company Number: WAES 0705USA05583

PATIENT
  Age: 47 Year
  Sex: Female
  Weight: 87.0906 kg

DRUGS (11)
  1. FOSAMAX [Suspect]
     Indication: BONE DISORDER
     Dosage: 70 MG/WKY/PO
     Route: 048
     Dates: start: 20040501
  2. FOSAMAX [Suspect]
     Indication: OSTEOPENIA
     Dosage: 70 MG/WKY/PO
     Route: 048
     Dates: start: 20040501
  3. FLEXERIL [Concomitant]
  4. FLONASE [Concomitant]
  5. IMITREX [Concomitant]
  6. VICODIN [Concomitant]
  7. WELLBUTRIN XL [Concomitant]
  8. DIAZEPAM [Concomitant]
  9. LEVOTHYROXINE SODIUM [Concomitant]
  10. NAPROXEN [Concomitant]
  11. OXYCODONE HCL [Concomitant]

REACTIONS (5)
  - BACK PAIN [None]
  - DENTAL CARIES [None]
  - DEPRESSION [None]
  - NECK PAIN [None]
  - PAIN IN JAW [None]
